FAERS Safety Report 9869331 (Version 1)
Quarter: 2014Q1

REPORT INFORMATION
  Report Type: Spontaneous
  Country: EG (occurrence: EG)
  Receive Date: 20140205
  Receipt Date: 20140205
  Transmission Date: 20141002
  Serious: Yes (Other)
  Sender: FDA-Public Use
  Company Number: EG-ROCHE-1343366

PATIENT
  Age: 47 Year
  Sex: Male

DRUGS (2)
  1. PEGASYS [Suspect]
     Indication: HEPATITIS C
     Route: 065
  2. RIBAVIRIN [Suspect]
     Indication: HEPATITIS C
     Route: 065

REACTIONS (5)
  - Generalised oedema [Not Recovered/Not Resolved]
  - Injection site rash [Unknown]
  - Skin exfoliation [Unknown]
  - Fatigue [Unknown]
  - Neuropathy peripheral [Unknown]
